FAERS Safety Report 18506760 (Version 1)
Quarter: 2020Q4

REPORT INFORMATION
  Report Type: Spontaneous
  Country: US (occurrence: US)
  Receive Date: 20201113
  Receipt Date: 20201113
  Transmission Date: 20210114
  Serious: No
  Sender: FDA-Public Use
  Company Number: None

PATIENT
  Age: 81 Year
  Sex: Female

DRUGS (1)
  1. BOSENTAN 62.5MG TABLETS 60/BO (TEVA) [Suspect]
     Active Substance: BOSENTAN
     Indication: PULMONARY HYPERTENSION
     Route: 048
     Dates: start: 20190613, end: 20201106

REACTIONS (2)
  - Liver function test increased [None]
  - Therapy change [None]

NARRATIVE: CASE EVENT DATE: 20201105
